FAERS Safety Report 6735541-5 (Version None)
Quarter: 2010Q2

REPORT INFORMATION
  Report Type: 
  Country: None (occurrence: None)
  Receive Date: 20100521
  Receipt Date: 20100512
  Transmission Date: 20101027
  Serious: Yes (Other)
  Sender: FDA-Public Use
  Company Number: GB-ELI_LILLY_AND_COMPANY-GB201004007112

PATIENT
  Sex: Male
  Weight: 93 kg

DRUGS (9)
  1. SOMATROPIN [Suspect]
     Indication: GROWTH HORMONE DEFICIENCY
     Dosage: 0.3 MG, DAILY (1/D)
     Route: 058
     Dates: start: 19990218, end: 20090107
  2. SOMATROPIN [Suspect]
     Route: 058
     Dates: start: 20100120
  3. LEVOTHYROXINE SODIUM [Concomitant]
     Indication: HYPOPITUITARISM
     Dates: start: 19940701
  4. HYDROCORTISONE [Concomitant]
     Indication: HYPOPITUITARISM
     Dates: start: 19940701
  5. DDAVP [Concomitant]
     Indication: HYPOPITUITARISM
     Dates: start: 19940901
  6. TESTOSTERONE [Concomitant]
     Indication: HYPOPITUITARISM
     Dosage: UNK, UNK
     Dates: start: 20040401, end: 20080924
  7. ADCAL D3 [Concomitant]
     Indication: OSTEOPENIA
     Dates: start: 20091001
  8. EZETIMIBE [Concomitant]
     Indication: HYPERLIPIDAEMIA
     Dates: start: 20070901
  9. DOXYCYCLINE [Concomitant]
     Indication: ROSACEA
     Dates: start: 20100101

REACTIONS (1)
  - PROSTATE CANCER [None]
